FAERS Safety Report 23097958 (Version 2)
Quarter: 2023Q4

REPORT INFORMATION
  Report Type: Spontaneous
  Country: US (occurrence: US)
  Receive Date: 20231023
  Receipt Date: 20231120
  Transmission Date: 20240109
  Serious: Yes (Other)
  Sender: FDA-Public Use
  Company Number: US-JNJFOC-20231035890

PATIENT
  Sex: Female

DRUGS (6)
  1. SPRAVATO [Suspect]
     Active Substance: ESKETAMINE
     Indication: Depression
     Dosage: LAST 2 APPOINTMENTS, DOSE WAS INCREASED TO 84MG.
     Dates: start: 201911
  2. SPRAVATO [Suspect]
     Active Substance: ESKETAMINE
     Dates: start: 202307
  3. SPRAVATO [Suspect]
     Active Substance: ESKETAMINE
  4. SEROQUEL [Concomitant]
     Active Substance: QUETIAPINE FUMARATE
     Route: 065
  5. CYMBALTA [Concomitant]
     Active Substance: DULOXETINE HYDROCHLORIDE
     Indication: Depression
     Route: 048
  6. OXYCONTIN [Concomitant]
     Active Substance: OXYCODONE HYDROCHLORIDE
     Route: 065

REACTIONS (7)
  - Suicidal ideation [Recovered/Resolved]
  - Depression [Recovering/Resolving]
  - Anxiety [Recovered/Resolved]
  - Drug withdrawal syndrome [Unknown]
  - Sedation [Recovering/Resolving]
  - Drug tolerance [Unknown]
  - Dissociation [Recovered/Resolved]
